FAERS Safety Report 5801453-4 (Version None)
Quarter: 2008Q3

REPORT INFORMATION
  Report Type: 
  Country: None (occurrence: None)
  Receive Date: 20080702
  Receipt Date: 20080624
  Transmission Date: 20090109
  Serious: Yes (Hospitalization)
  Sender: FDA-Public Use
  Company Number: 14437

PATIENT
  Age: 59 Year
  Sex: Female

DRUGS (7)
  1. MORPHINE SULFATE [Suspect]
     Dosage: 60 MG, BID, ORAL
     Route: 048
     Dates: start: 20080101
  2. SOMA [Concomitant]
  3. THYROID MEDICATION [Concomitant]
  4. HYPERTENSION [Concomitant]
  5. XANAX [Concomitant]
  6. NEURONTIN [Concomitant]
  7. PHNERGAN [Concomitant]

REACTIONS (4)
  - ABDOMINAL PAIN UPPER [None]
  - BLOOD PRESSURE DECREASED [None]
  - PHARMACEUTICAL PRODUCT COMPLAINT [None]
  - THERAPY REGIMEN CHANGED [None]
